FAERS Safety Report 5785913-0 (Version None)
Quarter: 2008Q2

REPORT INFORMATION
  Report Type: 
  Country: None (occurrence: None)
  Receive Date: 20080620
  Receipt Date: 20080620
  Transmission Date: 20081010
  Serious: Yes (Death)
  Sender: FDA-Public Use
  Company Number: None

PATIENT
  Sex: Female

DRUGS (9)
  1. REVLIMID [Suspect]
     Indication: MULTIPLE MYELOMA
     Dosage: 5MG  DAILY X21DAY, OFF 35 D PO
     Route: 048
  2. LEVOTHROID [Concomitant]
  3. FUROSEMIDE [Concomitant]
  4. KCLOR-CON [Concomitant]
  5. BUSPIRONE HCL [Concomitant]
  6. FLUOXETINE [Concomitant]
  7. DOXEPIN HCL [Concomitant]
  8. ENDOCET [Concomitant]
  9. LACTULOSE [Concomitant]

REACTIONS (3)
  - DISEASE PROGRESSION [None]
  - MULTIPLE MYELOMA [None]
  - PANCYTOPENIA [None]
